FAERS Safety Report 10004014 (Version 1)
Quarter: 2014Q1

REPORT INFORMATION
  Report Type: Spontaneous
  Country: GB (occurrence: GB)
  Receive Date: 20140312
  Receipt Date: 20140312
  Transmission Date: 20141002
  Serious: Yes (Other)
  Sender: FDA-Public Use
  Company Number: PHFR2014GB002076

PATIENT
  Age: 37 Year
  Sex: Male

DRUGS (3)
  1. CLOZARIL [Suspect]
     Dosage: UNK
     Route: 048
     Dates: start: 20120305
  2. CLOZARIL [Suspect]
     Dosage: 200 TO 275MG
     Route: 048
  3. CLOZARIL [Suspect]
     Dosage: 475 MG (NOCTE)

REACTIONS (3)
  - Dyspnoea [Unknown]
  - Tachycardia [Unknown]
  - White blood cell count increased [Unknown]
